FAERS Safety Report 7796967-4 (Version None)
Quarter: 2011Q4

REPORT INFORMATION
  Report Type: 
  Country: None (occurrence: None)
  Receive Date: 20111005
  Receipt Date: 20111005
  Transmission Date: 20120403
  Serious: Yes (Hospitalization)
  Sender: FDA-Public Use
  Company Number: None

PATIENT
  Age: 65 Year
  Sex: Female
  Weight: 90.5 kg

DRUGS (10)
  1. ETHACRYNIC ACID [Concomitant]
     Route: 048
  2. FORTAZ [Concomitant]
     Indication: LOCALISED INFECTION
     Dosage: 2G
     Route: 040
     Dates: start: 20110918, end: 20111001
  3. FLEXERIL [Concomitant]
     Route: 048
  4. OMEPRAZOLE [Concomitant]
     Route: 048
  5. ASPIRIN [Concomitant]
     Route: 048
  6. ZOCOR [Concomitant]
     Route: 048
  7. PHENERGAN HCL [Concomitant]
     Route: 048
  8. ZYVOX [Suspect]
     Indication: LOCALISED INFECTION
     Dosage: 600 MG
     Route: 048
     Dates: start: 20110918, end: 20111001
  9. GABAPENTIN [Concomitant]
     Route: 048
  10. VICODIN [Concomitant]
     Route: 048

REACTIONS (5)
  - LOCALISED INFECTION [None]
  - WOUND SECRETION [None]
  - THROMBOCYTOPENIA [None]
  - ANAEMIA [None]
  - CONTUSION [None]
